FAERS Safety Report 9985208 (Version 1)
Quarter: 2014Q1

REPORT INFORMATION
  Report Type: Report from Study
  Country: US (occurrence: US)
  Receive Date: 20140307
  Receipt Date: 20140307
  Transmission Date: 20141002
  Serious: Yes (Other)
  Sender: FDA-Public Use
  Company Number: US-ABBVIE-14P-163-1185715-00

PATIENT
  Age: 58 Year
  Sex: Female
  Weight: 81.72 kg

DRUGS (7)
  1. HUMIRA [Suspect]
     Indication: RHEUMATOID ARTHRITIS
     Dates: start: 201311, end: 201311
  2. HUMIRA [Suspect]
     Dates: start: 20131223, end: 20131223
  3. CLINDAMYCIN [Suspect]
     Indication: CELLULITIS
  4. SULFASALAZINE [Concomitant]
     Indication: RHEUMATOID ARTHRITIS
  5. SINGULAR [Concomitant]
     Indication: ASTHMA
  6. TRAMADOL [Concomitant]
     Indication: PAIN
     Dosage: AS NEEDED
  7. NICOTINE [Concomitant]
     Indication: SMOKING CESSATION THERAPY

REACTIONS (5)
  - Cellulitis [Unknown]
  - Rash macular [Not Recovered/Not Resolved]
  - Feeling hot [Not Recovered/Not Resolved]
  - Skin swelling [Not Recovered/Not Resolved]
  - Rash [Recovered/Resolved]
